FAERS Safety Report 19574736 (Version 1)
Quarter: 2021Q3

REPORT INFORMATION
  Report Type: Report from Study
  Country: BR (occurrence: BR)
  Receive Date: 20210719
  Receipt Date: 20210719
  Transmission Date: 20211014
  Serious: Yes (Congenital Anomaly, Other)
  Sender: FDA-Public Use
  Company Number: BR-GILEAD-2021-0540861

PATIENT
  Sex: Male

DRUGS (4)
  1. LAMIVUDINE. [Concomitant]
     Active Substance: LAMIVUDINE
  2. TENOFOVIR DISOPROXIL FUMARATE. [Suspect]
     Active Substance: TENOFOVIR DISOPROXIL FUMARATE
     Indication: HIV INFECTION
     Dosage: UNK
     Route: 064
  3. EFAVIRENZ. [Concomitant]
     Active Substance: EFAVIRENZ
  4. AZIDOTHYMIDINE [Concomitant]
     Active Substance: ZIDOVUDINE

REACTIONS (7)
  - Disturbance in attention [Unknown]
  - Irritability [Unknown]
  - Macrocephaly [Unknown]
  - Epilepsy [Unknown]
  - Foetal exposure during pregnancy [Recovered/Resolved]
  - Language disorder [Unknown]
  - Motor dysfunction [Unknown]
